FAERS Safety Report 15546016 (Version 2)
Quarter: 2018Q4

REPORT INFORMATION
  Report Type: Spontaneous
  Country: US (occurrence: US)
  Receive Date: 20181024
  Receipt Date: 20181119
  Transmission Date: 20190205
  Serious: Yes (Hospitalization)
  Sender: FDA-Public Use
  Company Number: US-PFIZER INC-2018423434

PATIENT
  Age: 67 Year
  Sex: Male
  Weight: 86.64 kg

DRUGS (4)
  1. BOSULIF [Suspect]
     Active Substance: BOSUTINIB MONOHYDRATE
     Indication: LEUKAEMIA
     Dosage: 1 DF, DAILY (400 MG)
     Route: 048
     Dates: start: 20180927
  2. BOSULIF [Suspect]
     Active Substance: BOSUTINIB MONOHYDRATE
     Dosage: UNK UNK, DAILY
  3. BOSULIF [Suspect]
     Active Substance: BOSUTINIB MONOHYDRATE
     Dosage: AT THE DECREASED DOSE, ALTERNATE DAY
  4. ALLOPURINOL. [Concomitant]
     Active Substance: ALLOPURINOL
     Dosage: 100 MG, DAILY

REACTIONS (4)
  - Blood creatinine decreased [Unknown]
  - Anaemia [Recovering/Resolving]
  - Blood potassium increased [Not Recovered/Not Resolved]
  - Bone pain [Unknown]
